FAERS Safety Report 23022232 (Version 1)
Quarter: 2023Q4

REPORT INFORMATION
  Report Type: Report from Study
  Country: US (occurrence: US)
  Receive Date: 20231003
  Receipt Date: 20231003
  Transmission Date: 20240109
  Serious: Yes (Death)
  Sender: FDA-Public Use
  Company Number: US-ABBVIE-5431616

PATIENT
  Age: 64 Year
  Sex: Male

DRUGS (1)
  1. VENCLEXTA [Suspect]
     Active Substance: VENETOCLAX
     Indication: Chronic myeloid leukaemia
     Dosage: TAKE 1 TABLET BY MOUTH (100MG) EVERY DAY FOR 14 DAYS THEN OFF FOR 14 DAYS
     Route: 048
     Dates: start: 20221111, end: 20230406

REACTIONS (2)
  - Death [Fatal]
  - Off label use [Unknown]

NARRATIVE: CASE EVENT DATE: 20221111
